FAERS Safety Report 25329248 (Version 2)
Quarter: 2025Q3

REPORT INFORMATION
  Report Type: Report from Study
  Country: EU (occurrence: EU)
  Receive Date: 20250519
  Receipt Date: 20250923
  Transmission Date: 20251020
  Serious: Yes (Hospitalization, Other)
  Sender: ORGANON
  Company Number: None

PATIENT
  Age: 83 Year
  Sex: Female

DRUGS (11)
  1. MIRTAZAPINE [Suspect]
     Active Substance: MIRTAZAPINE
     Dosage: 7.5 MILLIGRAM, QD (0.5 TABLET / 24 HOURS), POOR ADHERENCE (30 TABLETS)
     Route: 048
     Dates: start: 20250220, end: 20250414
  2. INDAPAMIDE [Suspect]
     Active Substance: INDAPAMIDE
     Indication: Hypertension
     Dosage: 1.5 MILLIGRAM, Q24H (1 TABLET / 24 HOURS, DEPENDING ON BLOOD PRESSURE) (30 TABLETS MODIFIED RELEASE)
     Route: 048
     Dates: start: 20150110, end: 20250414
  3. SERTRALINE [Suspect]
     Active Substance: SERTRALINE HYDROCHLORIDE
     Dosage: 50 MILLIGRAM, QD (1 TABLET / 24 HOURS, POOR ADHERENCE), 30 TABLETS
     Route: 048
     Dates: start: 20250117, end: 20250414
  4. PREGABALIN [Suspect]
     Active Substance: PREGABALIN
     Dosage: 1 CAPSULE / 12 HOURS (56 CAPSULES)
     Route: 048
     Dates: start: 20241218, end: 20250416
  5. LEVOFLOXACIN [Concomitant]
     Active Substance: LEVOFLOXACIN
     Indication: Urinary tract infection
     Dosage: 500 MILLIGRAM, Q12H (1 TABLET / 12 HOURS), 14 TABLETS
     Route: 048
     Dates: start: 20250409, end: 20250416
  6. METOCLOPRAMIDE [Concomitant]
     Active Substance: METOCLOPRAMIDE
     Dosage: 1 TABLET / 8 HOURS (30 TABLETS)
     Route: 048
     Dates: start: 20250407, end: 20250416
  7. BROMAZEPAM [Concomitant]
     Active Substance: BROMAZEPAM
     Indication: Insomnia
     Dosage: 1 CAPSULE / 24 HOURS, IF INSOMNIA (30 CAPSULES)
     Route: 048
     Dates: start: 20240221, end: 20250501
  8. DUPHALAC [Concomitant]
     Active Substance: LACTULOSE
     Dosage: 1 SACHET / 8 HOURS (ORAL SOLUTION IN SACHET, 50 STICKS)
     Route: 048
     Dates: start: 20250324
  9. FAMOTIDINE [Concomitant]
     Active Substance: FAMOTIDINE
     Dosage: 20 MILLIGRAM, QD (1 TABLET / 8 HOURS) (28 TABLETS)
     Route: 048
     Dates: start: 20220618
  10. SOLIFENACIN [Concomitant]
     Active Substance: SOLIFENACIN
     Dosage: 5 MILLIGRAM, QD (1 TABLET / 8 HOURS) (30 TABLETS)
     Route: 048
     Dates: start: 20241219
  11. TAMSULOSIN [Concomitant]
     Active Substance: TAMSULOSIN
     Indication: Urinary retention
     Dosage: 1 TABLET / 24 HOURS (30 TABLETS)
     Route: 048
     Dates: start: 20241211

REACTIONS (3)
  - Hyponatraemia [Recovered/Resolved]
  - Hypokalaemia [Recovered/Resolved]
  - Underdose [Unknown]

NARRATIVE: CASE EVENT DATE: 20250220
